FAERS Safety Report 9666630 (Version 1)
Quarter: 2013Q4

REPORT INFORMATION
  Report Type: Spontaneous
  Country: US (occurrence: US)
  Receive Date: 20131104
  Receipt Date: 20131104
  Transmission Date: 20140711
  Serious: No
  Sender: FDA-Public Use
  Company Number: US-BIOGENIDEC-2013BI086986

PATIENT
  Sex: Female

DRUGS (10)
  1. TECFIDERA [Suspect]
     Indication: MULTIPLE SCLEROSIS
     Route: 048
     Dates: start: 20130624
  2. 4-AMINOPYRIDINE [Concomitant]
  3. BACLOFEN [Concomitant]
  4. BUPROPION HCL [Concomitant]
  5. DETROL LA [Concomitant]
  6. GABAPENTIN [Concomitant]
  7. NECON 1/35 (28) [Concomitant]
  8. NITROFURANTION MONOHYD MACRO [Concomitant]
  9. PRILOSEC [Concomitant]
  10. WELLBUTRIN [Concomitant]

REACTIONS (5)
  - Fall [Recovered/Resolved]
  - Gait disturbance [Unknown]
  - Dizziness [Unknown]
  - Hot flush [Unknown]
  - Nausea [Unknown]
